FAERS Safety Report 8198224-3 (Version None)
Quarter: 2012Q1

REPORT INFORMATION
  Report Type: 
  Country: None (occurrence: None)
  Receive Date: 20120309
  Receipt Date: 20120301
  Transmission Date: 20120608
  Serious: Yes (Other)
  Sender: FDA-Public Use
  Company Number: PHFR2003GB03050

PATIENT
  Sex: Female

DRUGS (1)
  1. CLOZARIL [Suspect]
     Indication: SCHIZOPHRENIA
     Dosage: 550 MG DAILY
     Route: 048
     Dates: start: 19971215

REACTIONS (3)
  - PLATELET COUNT DECREASED [None]
  - AUTOIMMUNE THROMBOCYTOPENIA [None]
  - NASOPHARYNGITIS [None]
